FAERS Safety Report 17231031 (Version 3)
Quarter: 2020Q1

REPORT INFORMATION
  Report Type: Spontaneous
  Country: US (occurrence: US)
  Receive Date: 20200103
  Receipt Date: 20200224
  Transmission Date: 20200409
  Serious: No
  Sender: FDA-Public Use
  Company Number: US-PFIZER INC-2019559020

PATIENT
  Age: 78 Year
  Sex: Female
  Weight: 86.17 kg

DRUGS (35)
  1. VICTOZA [Concomitant]
     Active Substance: LIRAGLUTIDE
     Indication: DIABETES MELLITUS
     Dosage: 1.8 MG, DAILY
  2. PROAIR HFA [Concomitant]
     Active Substance: ALBUTEROL SULFATE
     Dosage: 1 DF (1 PUFF), AS NEEDED (DAILY)
  3. ZOLOFT [Concomitant]
     Active Substance: SERTRALINE HYDROCHLORIDE
     Indication: STRESS
     Dosage: 25 MG, 1X/DAY (1/AM)
  4. LIPOFEN [Concomitant]
     Active Substance: FENOFIBRATE
     Dosage: 150 MG, 1X/DAY (PM)
  5. CEVIMELINE HCL [Concomitant]
     Active Substance: CEVIMELINE HYDROCHLORIDE
     Dosage: 30 MG, 3X/DAY
  6. ATORVASTATIN [Concomitant]
     Active Substance: ATORVASTATIN
     Dosage: 10 MG, 1X/DAY (AM)
  7. VITEYES [Concomitant]
     Dosage: DAILY VITEYES MULTI-VITAMIN
  8. VITAMIN D [COLECALCIFEROL] [Concomitant]
     Active Substance: CHOLECALCIFEROL
     Dosage: 2000 MG, DAILY
  9. BIOTIN [Concomitant]
     Active Substance: BIOTIN
     Dosage: UNK, DAILY (5000)
  10. EFFEXOR XR [Concomitant]
     Active Substance: VENLAFAXINE HYDROCHLORIDE
     Indication: STRESS
     Dosage: 75 MG, 1X/DAY (AM)
  11. DOCUSATE SODIUM. [Concomitant]
     Active Substance: DOCUSATE SODIUM
     Dosage: 100 MG, 2X/DAY
  12. ADVAIR HFA [Concomitant]
     Active Substance: FLUTICASONE PROPIONATE\SALMETEROL XINAFOATE
     Dosage: 115MCG/21MCG (12GM, EVERY 12 HOURS)
     Route: 055
  13. FOLINIC PLUS [Concomitant]
     Dosage: 4-50-2MG, 2X/DAY
  14. HYDROCODONE [Concomitant]
     Active Substance: HYDROCODONE
     Indication: PAIN
     Dosage: 10/325, AS NEEDED
  15. GLIMEPIRIDE. [Concomitant]
     Active Substance: GLIMEPIRIDE
     Dosage: 0.5 MG (1/2 PILL), DAILY AS NEEDED
  16. VITEYES [Concomitant]
     Indication: EYE DISORDER
     Dosage: 2-DAILY VITEYES DIETARY SUPPLEMENT
  17. FIBER LAX [Concomitant]
     Active Substance: CALCIUM POLYCARBOPHIL
     Dosage: 1000 MG, 1X/DAY (PM)
  18. MUCINEX [Concomitant]
     Active Substance: GUAIFENESIN
     Dosage: UNK, 2X/DAY (AM-PM)
  19. FUROSEMIDE. [Concomitant]
     Active Substance: FUROSEMIDE
     Indication: FLUID RETENTION
     Dosage: 40 MG, 2X/DAY (1AM-1PM)
  20. NEXIUM [Concomitant]
     Active Substance: ESOMEPRAZOLE MAGNESIUM
     Indication: GASTRIC DISORDER
     Dosage: 40 MG, 1X/DAY (AM)
  21. GABAPENTIN. [Concomitant]
     Active Substance: GABAPENTIN
     Dosage: 300 MG, 3X/DAY
  22. SUCRALFATE. [Concomitant]
     Active Substance: SUCRALFATE
     Dosage: 10 MG, 3X/DAY
  23. XELJANZ XR [Suspect]
     Active Substance: TOFACITINIB CITRATE
     Indication: RHEUMATOID ARTHRITIS
     Dosage: 11 MG, 1X/DAY
     Dates: start: 201911
  24. IMDUR [Concomitant]
     Active Substance: ISOSORBIDE MONONITRATE
     Indication: CARDIAC DISORDER
     Dosage: 60 MG, 2X/DAY (AM, PM)
  25. ZANTAC [Concomitant]
     Active Substance: RANITIDINE HYDROCHLORIDE
     Indication: DYSPEPSIA
     Dosage: 150 MG, 1X/DAY (PM)
  26. SINGULAIR [Concomitant]
     Active Substance: MONTELUKAST SODIUM
     Indication: HYPERSENSITIVITY
     Dosage: 10 MG, 1X/DAY (AM)
  27. SPIRIVA RESPIMAT [Concomitant]
     Active Substance: TIOTROPIUM BROMIDE
     Dosage: 2 DF (2 PUFFS), DAILY
  28. ATENOLOL. [Concomitant]
     Active Substance: ATENOLOL
     Indication: CARDIAC DISORDER
     Dosage: 25 MG, 1X/DAY (AM)
  29. PLAVIX [Concomitant]
     Active Substance: CLOPIDOGREL BISULFATE
     Indication: CARDIAC DISORDER
     Dosage: 5 MG, 1X/DAY (AM)
  30. KLOR-CON [Concomitant]
     Active Substance: POTASSIUM CHLORIDE
     Indication: BLOOD POTASSIUM ABNORMAL
     Dosage: 20 MG, 2X/DAY (1/AM, 1/PM)
  31. METFORMIN [Concomitant]
     Active Substance: METFORMIN HYDROCHLORIDE
     Dosage: 500 MG, 2X/DAY (1AM/1PM)
  32. ARANESP [Concomitant]
     Active Substance: DARBEPOETIN ALFA
     Dosage: 300 MG, AS NEEDED (BI-MONTHLY)
  33. ALIGN [Concomitant]
     Active Substance: BIFIDOBACTERIUM LONGUM SUBSP. INFANTIS
     Dosage: 1 DF, UNK
  34. MYRBETRIQ [Concomitant]
     Active Substance: MIRABEGRON
     Dosage: 50 MG, 2X/DAY (AM/PM)
  35. LEVOTHYROXINE. [Concomitant]
     Active Substance: LEVOTHYROXINE
     Indication: THYROID DISORDER
     Dosage: 115 MG, UNK

REACTIONS (2)
  - Hyperphagia [Not Recovered/Not Resolved]
  - Weight increased [Not Recovered/Not Resolved]

NARRATIVE: CASE EVENT DATE: 201911
